FAERS Safety Report 4731679-2 (Version None)
Quarter: 2005Q3

REPORT INFORMATION
  Report Type: 
  Country: None (occurrence: None)
  Receive Date: 20050729
  Receipt Date: 20050729
  Transmission Date: 20060218
  Serious: Yes (Other)
  Sender: FDA-Public Use
  Company Number: None

PATIENT
  Age: 42 Year
  Sex: Male
  Weight: 62.5964 kg

DRUGS (1)
  1. LAMISIL [Suspect]
     Indication: ONYCHOMYCOSIS
     Dosage: 250 MG DAILY ORAL
     Route: 048
     Dates: start: 20010910, end: 20011216

REACTIONS (6)
  - ALOPECIA [None]
  - FOOT FRACTURE [None]
  - HAIR DISORDER [None]
  - HAIR TEXTURE ABNORMAL [None]
  - PAIN [None]
  - SENSORY DISTURBANCE [None]
